FAERS Safety Report 9693563 (Version 4)
Quarter: 2013Q4

REPORT INFORMATION
  Report Type: Report from Study
  Country: IT (occurrence: IT)
  Receive Date: 20131118
  Receipt Date: 20131218
  Transmission Date: 20140711
  Serious: Yes (Hospitalization, Other)
  Sender: FDA-Public Use
  Company Number: IT-GLAXOSMITHKLINE-Z0021612A

PATIENT
  Age: 65 Year
  Sex: Male
  Weight: 118 kg

DRUGS (14)
  1. TRAMETINIB [Suspect]
     Indication: MALIGNANT MELANOMA
     Dosage: 2MG PER DAY
     Route: 048
     Dates: start: 20130729, end: 20131111
  2. DABRAFENIB [Suspect]
     Indication: MALIGNANT MELANOMA
     Dosage: 150MG TWICE PER DAY
     Route: 048
     Dates: start: 20130729, end: 20131111
  3. AUGMENTIN [Concomitant]
     Dates: start: 20131101, end: 20131105
  4. BARNIDIPINE HYDROCHLORIDE [Concomitant]
     Indication: HYPERTENSION
     Dosage: 20MG PER DAY
     Route: 048
     Dates: start: 19930101, end: 20131112
  5. COTAREG [Concomitant]
     Indication: HYPERTENSION
     Dosage: 185MG PER DAY
     Route: 048
     Dates: start: 19980101
  6. REPAGLINIDE [Concomitant]
     Indication: DIABETES MELLITUS
     Dosage: 1MG TWICE PER DAY
     Route: 048
     Dates: start: 20000101, end: 20131111
  7. METFORMINA [Concomitant]
     Indication: DIABETES MELLITUS
     Dosage: 850MG THREE TIMES PER DAY
     Route: 048
     Dates: start: 20000101, end: 20131111
  8. TOTALIP [Concomitant]
     Indication: HYPERCHOLESTEROLAEMIA
     Dosage: 20MG PER DAY
     Route: 048
     Dates: start: 19930101, end: 20131120
  9. CARDIOASPIRIN [Concomitant]
     Indication: HYPERTENSION
     Dosage: 100MG PER DAY
     Route: 048
     Dates: start: 20030101
  10. REPAGLINIDE [Concomitant]
     Indication: DIABETES MELLITUS
     Dosage: 1G THREE TIMES PER DAY
     Route: 048
     Dates: start: 20131112
  11. TORVAST [Concomitant]
     Indication: HYPERCHOLESTEROLAEMIA
     Dosage: 20MG PER DAY
     Route: 048
     Dates: start: 20131121
  12. UNKNOWN MEDICATION [Concomitant]
     Indication: FACIAL NERVE DISORDER
     Dosage: 1APP PER DAY
     Route: 047
     Dates: start: 20131121
  13. SODIUM HYALURONATE [Concomitant]
     Indication: FACIAL NERVE DISORDER
     Dosage: 1APP PER DAY
     Route: 047
     Dates: start: 20131121
  14. METFORMINA [Concomitant]
     Indication: DIABETES MELLITUS
     Dosage: 1G THREE TIMES PER DAY
     Route: 048
     Dates: start: 20131112

REACTIONS (1)
  - Hepatotoxicity [Recovered/Resolved]
